FAERS Safety Report 7813861-0 (Version None)
Quarter: 2011Q4

REPORT INFORMATION
  Report Type: 
  Country: None (occurrence: None)
  Receive Date: 20111014
  Receipt Date: 20111010
  Transmission Date: 20120403
  Serious: Yes (Hospitalization)
  Sender: FDA-Public Use
  Company Number: US-VERTEX PHARMACEUTICALS INC.-AE-2011-002184

PATIENT
  Sex: Male
  Weight: 72.64 kg

DRUGS (7)
  1. PEGASYS [Concomitant]
     Indication: HEPATITIS C
     Route: 058
     Dates: start: 20110815
  2. KLONOPIN [Concomitant]
  3. TRILEPTAL [Concomitant]
  4. NIFEDIPINE [Concomitant]
  5. INCIVEK [Suspect]
     Indication: HEPATITIS C
     Dates: start: 20110815
  6. RIBAVIRIN [Concomitant]
     Indication: HEPATITIS C
     Dates: start: 20110815
  7. REMERON [Concomitant]

REACTIONS (9)
  - FATIGUE [None]
  - DEHYDRATION [None]
  - DECREASED APPETITE [None]
  - ABDOMINAL PAIN UPPER [None]
  - GAIT DISTURBANCE [None]
  - HEADACHE [None]
  - NAUSEA [None]
  - DRUG DOSE OMISSION [None]
  - WEIGHT DECREASED [None]
